FAERS Safety Report 16890935 (Version 1)
Quarter: 2019Q4

REPORT INFORMATION
  Report Type: Report from Study
  Country: US (occurrence: US)
  Receive Date: 20191007
  Receipt Date: 20191007
  Transmission Date: 20200122
  Serious: Yes (Death)
  Sender: FDA-Public Use
  Company Number: US-PFIZER INC-2019427784

PATIENT
  Sex: Male

DRUGS (4)
  1. DECADRON [Suspect]
     Active Substance: DEXAMETHASONE
     Indication: HORMONE-REFRACTORY PROSTATE CANCER
     Dosage: 8 MG, CYCLIC (2X/DAY, ON DAYS 1 THROUGH 3, ON 21-DAY CYCLES)
  2. BEVACIZUMAB. [Suspect]
     Active Substance: BEVACIZUMAB
     Indication: HORMONE-REFRACTORY PROSTATE CANCER
     Dosage: 15 MG/KG, CYCLIC (AFTER DOCETAXEL ON DAY 2, ON 21-DAY CYCLES)
     Route: 042
  3. EMCYT [Suspect]
     Active Substance: ESTRAMUSTINE PHOSPHATE SODIUM
     Indication: HORMONE-REFRACTORY PROSTATE CANCER
     Dosage: 280 MG, CYCLIC (3X/DAY ON DAYS 1 THROUGH 5, ON 21-DAY CYCLES)
     Route: 048
  4. TAXOTERE [Suspect]
     Active Substance: DOCETAXEL
     Indication: HORMONE-REFRACTORY PROSTATE CANCER
     Dosage: 70 MG/M2, CYCLIC (ON DAY 2 OVER 1 HOUR, ON 21-DAY CYCLES)
     Route: 042

REACTIONS (1)
  - Mesenteric vein thrombosis [Fatal]
